FAERS Safety Report 7373343-X (Version None)
Quarter: 2011Q1

REPORT INFORMATION
  Report Type: 
  Country: None (occurrence: None)
  Receive Date: 20110324
  Receipt Date: 20110316
  Transmission Date: 20110831
  Serious: Yes (Hospitalization, Other)
  Sender: FDA-Public Use
  Company Number: US-AMGEN-USASP2011014630

PATIENT
  Age: 56 Year
  Sex: Male

DRUGS (1)
  1. ENBREL [Suspect]
     Indication: RHEUMATOID ARTHRITIS
     Dosage: 50 MG, QWK
     Dates: start: 20100320

REACTIONS (5)
  - EYE PAIN [None]
  - BURNING SENSATION [None]
  - NERVE ROOT COMPRESSION [None]
  - MEMORY IMPAIRMENT [None]
  - DYSKINESIA [None]
